FAERS Safety Report 7199917-7 (Version None)
Quarter: 2010Q4

REPORT INFORMATION
  Report Type: 
  Country: None (occurrence: None)
  Receive Date: 20101228
  Receipt Date: 20101212
  Transmission Date: 20110411
  Serious: No
  Sender: FDA-Public Use
  Company Number: US-PFIZER INC-2010170435

PATIENT
  Sex: Male

DRUGS (3)
  1. LIPITOR [Suspect]
     Dosage: 20 MG, UNK
  2. FISH OIL [Concomitant]
  3. RED YEAST RICE [Concomitant]

REACTIONS (1)
  - HEPATIC ENZYME INCREASED [None]
